FAERS Safety Report 19028102 (Version 1)
Quarter: 2021Q1

REPORT INFORMATION
  Report Type: Spontaneous
  Country: FR (occurrence: FR)
  Receive Date: 20210319
  Receipt Date: 20210319
  Transmission Date: 20210420
  Serious: Yes (Hospitalization)
  Sender: FDA-Public Use
  Company Number: FR-TEVA-2021-FR-1890973

PATIENT
  Age: 84 Year
  Sex: Female
  Weight: 50 kg

DRUGS (8)
  1. SERESTA [Concomitant]
     Active Substance: OXAZEPAM
  2. PARACETAMOL [Concomitant]
     Active Substance: ACETAMINOPHEN
  3. PANTOPRAZOLE [Suspect]
     Active Substance: PANTOPRAZOLE
     Indication: PRODUCT USED FOR UNKNOWN INDICATION
     Dosage: 2DF
     Route: 048
     Dates: end: 202102
  4. PERINDOPRIL [Concomitant]
     Active Substance: PERINDOPRIL
  5. DUPHALAC [Concomitant]
     Active Substance: LACTULOSE
  6. CITALOPRAM (CHLORHYDRATE DE) [Suspect]
     Active Substance: CITALOPRAM HYDROCHLORIDE
     Indication: DEPRESSION
     Dosage: 1DF
     Route: 048
     Dates: end: 202102
  7. ZYMAD [Concomitant]
     Active Substance: CHOLECALCIFEROL
  8. ATORVASTATINE [Concomitant]
     Active Substance: ATORVASTATIN

REACTIONS (3)
  - Hyponatraemia [Recovered/Resolved]
  - Hypokalaemia [Recovered/Resolved]
  - Vomiting [Recovered/Resolved]

NARRATIVE: CASE EVENT DATE: 20210204
